FAERS Safety Report 23766377 (Version 1)
Quarter: 2024Q2

REPORT INFORMATION
  Report Type: Spontaneous
  Country: BR (occurrence: BR)
  Receive Date: 20240422
  Receipt Date: 20240422
  Transmission Date: 20240715
  Serious: Yes (Hospitalization, Other)
  Sender: FDA-Public Use
  Company Number: BR-BAXTER-2024BAX016930

PATIENT
  Age: 25 Year
  Sex: Female
  Weight: 70 kg

DRUGS (1)
  1. PROPOFOL [Suspect]
     Active Substance: PROPOFOL
     Indication: Sedative therapy
     Dosage: 4 ML, IN A SINGLE DOSE
     Route: 042
     Dates: start: 20240326, end: 20240326

REACTIONS (10)
  - Chills [Recovered/Resolved]
  - Vomiting [Recovered/Resolved]
  - Asthenia [Recovered/Resolved]
  - Tachycardia [Recovered/Resolved]
  - Myalgia [Recovered/Resolved]
  - Hyperaemia [Recovered/Resolved]
  - Leukopenia [Recovered/Resolved]
  - Hypotension [Recovered/Resolved]
  - Pyrexia [Recovered/Resolved]
  - Toxicity to various agents [Unknown]

NARRATIVE: CASE EVENT DATE: 20240326
